FAERS Safety Report 25790460 (Version 2)
Quarter: 2025Q3

REPORT INFORMATION
  Report Type: Spontaneous
  Country: GB (occurrence: GB)
  Receive Date: 20250911
  Receipt Date: 20250913
  Transmission Date: 20251021
  Serious: Yes (Other)
  Sender: CELLTRION
  Company Number: GB-CELLTRION INC.-2025GB032004

PATIENT

DRUGS (9)
  1. INFLIXIMAB [Suspect]
     Active Substance: INFLIXIMAB
     Indication: Pouchitis
     Dates: start: 20200101, end: 20200301
  2. INFLIXIMAB [Suspect]
     Active Substance: INFLIXIMAB
     Indication: Enteritis
  3. INFLIXIMAB [Suspect]
     Active Substance: INFLIXIMAB
     Indication: Fistula
  4. ADALIMUMAB [Suspect]
     Active Substance: ADALIMUMAB
     Indication: Pouchitis
     Dates: start: 202406
  5. ADALIMUMAB [Suspect]
     Active Substance: ADALIMUMAB
     Indication: Enteritis
     Dates: start: 202407
  6. ADALIMUMAB [Suspect]
     Active Substance: ADALIMUMAB
     Indication: Fistula
  7. VEDOLIZUMAB [Suspect]
     Active Substance: VEDOLIZUMAB
     Indication: Pouchitis
  8. VEDOLIZUMAB [Suspect]
     Active Substance: VEDOLIZUMAB
     Indication: Enteritis
  9. VEDOLIZUMAB [Suspect]
     Active Substance: VEDOLIZUMAB
     Indication: Fistula

REACTIONS (4)
  - Lemierre syndrome [Unknown]
  - Abdominal wall abscess [Unknown]
  - Drug specific antibody present [Unknown]
  - Intentional product use issue [Unknown]
